FAERS Safety Report 6982513-1 (Version None)
Quarter: 2010Q3

REPORT INFORMATION
  Report Type: 
  Country: None (occurrence: None)
  Receive Date: 20100914
  Receipt Date: 20100128
  Transmission Date: 20110219
  Serious: No
  Sender: FDA-Public Use
  Company Number: US-PFIZER INC-2010012422

PATIENT
  Sex: Male
  Weight: 106 kg

DRUGS (2)
  1. LYRICA [Suspect]
     Indication: HERPES ZOSTER
     Dosage: UNK
     Dates: start: 20100119, end: 20100125
  2. ACICLOVIR [Concomitant]
     Dosage: UNK

REACTIONS (1)
  - URTICARIA [None]
